FAERS Safety Report 17928618 (Version 1)
Quarter: 2020Q2

REPORT INFORMATION
  Report Type: Spontaneous
  Country: US (occurrence: US)
  Receive Date: 20200622
  Receipt Date: 20200622
  Transmission Date: 20200714
  Serious: Yes (Hospitalization)
  Sender: FDA-Public Use
  Company Number: None

PATIENT
  Age: 75 Year
  Sex: Male
  Weight: 102.97 kg

DRUGS (1)
  1. CARVEDILOL (CARVEDILOL 25MG TAB) [Suspect]
     Active Substance: CARVEDILOL
     Indication: HYPERTENSION
     Route: 048
     Dates: start: 20200115, end: 20200116

REACTIONS (11)
  - Documented hypersensitivity to administered product [None]
  - Heart rate decreased [None]
  - Hallucination [None]
  - Dizziness [None]
  - Acute kidney injury [None]
  - Vision blurred [None]
  - Hypertensive emergency [None]
  - Bradycardia [None]
  - Hyperkalaemia [None]
  - Mean arterial pressure decreased [None]
  - Thinking abnormal [None]

NARRATIVE: CASE EVENT DATE: 20200116
